FAERS Safety Report 21950405 (Version 2)
Quarter: 2023Q1

REPORT INFORMATION
  Report Type: Spontaneous
  Country: US (occurrence: US)
  Receive Date: 20230203
  Receipt Date: 20230217
  Transmission Date: 20230418
  Serious: No
  Sender: FDA-Public Use
  Company Number: US-PFIZER INC-202300047806

PATIENT
  Age: 48 Year
  Sex: Female
  Weight: 63.5 kg

DRUGS (1)
  1. VERAPAMIL HCL [Suspect]
     Active Substance: VERAPAMIL HYDROCHLORIDE
     Indication: Cardiac disorder
     Dosage: UNK

REACTIONS (2)
  - Malaise [Unknown]
  - Drug ineffective [Unknown]
